FAERS Safety Report 16759243 (Version 4)
Quarter: 2025Q3

REPORT INFORMATION
  Report Type: Report from Study
  Country: US (occurrence: US)
  Receive Date: 20190830
  Receipt Date: 20250826
  Transmission Date: 20251020
  Serious: Yes (Hospitalization, Other)
  Sender: TAKEDA
  Company Number: US-TAKEDA-2019TUS050208

PATIENT
  Sex: Male

DRUGS (34)
  1. PONATINIB [Suspect]
     Active Substance: PONATINIB
     Indication: Chronic myeloid leukaemia
     Dosage: 45 MILLIGRAM, QD
     Dates: start: 20180307
  2. PONATINIB [Suspect]
     Active Substance: PONATINIB
     Dosage: 15 MILLIGRAM, QD
  3. PONATINIB [Suspect]
     Active Substance: PONATINIB
     Dosage: 15 MILLIGRAM, QD
  4. BACTRIM DS [Concomitant]
     Active Substance: SULFAMETHOXAZOLE\TRIMETHOPRIM
  5. XALATAN [Concomitant]
     Active Substance: LATANOPROST
  6. TIMOPTIC [Concomitant]
     Active Substance: TIMOLOL MALEATE
  7. TACROLIMUS [Concomitant]
     Active Substance: TACROLIMUS
  8. ZOFRAN [Concomitant]
     Active Substance: ONDANSETRON HYDROCHLORIDE
  9. DIFLUCAN [Concomitant]
     Active Substance: FLUCONAZOLE
  10. VALTREX [Concomitant]
     Active Substance: VALACYCLOVIR HYDROCHLORIDE
  11. ACTIGALL [Concomitant]
     Active Substance: URSODIOL
  12. DIOVAN HCT [Concomitant]
     Active Substance: HYDROCHLOROTHIAZIDE\VALSARTAN
  13. METFORMIN HYDROCHLORIDE [Concomitant]
     Active Substance: METFORMIN HYDROCHLORIDE
  14. CRESTOR [Concomitant]
     Active Substance: ROSUVASTATIN CALCIUM
  15. Zetacet [Concomitant]
  16. SYNTHROID [Concomitant]
     Active Substance: LEVOTHYROXINE SODIUM
  17. OPSUMIT [Concomitant]
     Active Substance: MACITENTAN
  18. SILDENAFIL [Concomitant]
     Active Substance: SILDENAFIL
  19. CRESEMBA [Concomitant]
     Active Substance: ISAVUCONAZONIUM SULFATE
  20. ACYCLOVIR [Concomitant]
     Active Substance: ACYCLOVIR
  21. ASPIRIN [Concomitant]
     Active Substance: ASPIRIN
  22. D3 max [Concomitant]
  23. ALLOPURINOL [Concomitant]
     Active Substance: ALLOPURINOL
  24. CARVEDILOL [Concomitant]
     Active Substance: CARVEDILOL
  25. BUMETANIDE [Concomitant]
     Active Substance: BUMETANIDE
  26. ETHINYL ESTRADIOL\MEDROXYPROGESTERONE ACETATE [Concomitant]
     Active Substance: ETHINYL ESTRADIOL\MEDROXYPROGESTERONE ACETATE
  27. MONTELUKAST SODIUM [Concomitant]
     Active Substance: MONTELUKAST SODIUM
  28. NOVOLIN 70/30 [Concomitant]
     Active Substance: INSULIN HUMAN
  29. LUMIGAN [Concomitant]
     Active Substance: BIMATOPROST
  30. AMLODIPINE BESYLATE [Concomitant]
     Active Substance: AMLODIPINE BESYLATE
  31. PANTOPRAZOLE SODIUM [Concomitant]
     Active Substance: PANTOPRAZOLE SODIUM
  32. ATORVASTATIN CALCIUM [Concomitant]
     Active Substance: ATORVASTATIN CALCIUM
  33. BRIMONIDINE TARTRATE [Concomitant]
     Active Substance: BRIMONIDINE TARTRATE
  34. DORZOLAMIDE HYDROCHLORIDE [Concomitant]
     Active Substance: DORZOLAMIDE HYDROCHLORIDE

REACTIONS (3)
  - Mycobacterium abscessus infection [Unknown]
  - Pulmonary hypertension [Unknown]
  - Product use issue [Unknown]
